FAERS Safety Report 5304937-0 (Version None)
Quarter: 2007Q2

REPORT INFORMATION
  Report Type: 
  Country: None (occurrence: None)
  Receive Date: 20070423
  Receipt Date: 20070413
  Transmission Date: 20071010
  Serious: Yes (Other)
  Sender: FDA-Public Use
  Company Number: GB-SHR-GB-2007-012997

PATIENT
  Age: 45 Year
  Sex: Female

DRUGS (5)
  1. FLUDARABINE [Suspect]
     Indication: STEM CELL TRANSPLANT
  2. BUSULPHAN [Suspect]
     Indication: STEM CELL TRANSPLANT
  3. PENICILLIN V [Concomitant]
     Dosage: 250 MG, 2X/DAY
     Route: 048
  4. ACYCLOVIR [Concomitant]
     Dosage: 200 MG, 3X/DAY
     Route: 048
  5. CAMPATH [Suspect]

REACTIONS (4)
  - FIBROSIS [None]
  - GRANULOMA SKIN [None]
  - GRANULOMATOUS LIVER DISEASE [None]
  - SARCOIDOSIS [None]
